FAERS Safety Report 9321196 (Version 3)
Quarter: 2013Q4

REPORT INFORMATION
  Report Type: Spontaneous
  Country: ES (occurrence: ES)
  Receive Date: 20130531
  Receipt Date: 20131211
  Transmission Date: 20140711
  Serious: Yes (Other)
  Sender: FDA-Public Use
  Company Number: ES-VERTEX PHARMACEUTICALS INC-2013-006586

PATIENT
  Sex: 0

DRUGS (5)
  1. INCIVO [Suspect]
     Indication: CHRONIC HEPATITIS C
     Dosage: UNK
     Route: 048
     Dates: start: 201301, end: 201306
  2. PEGYLATED INTERFERON [Suspect]
     Indication: CHRONIC HEPATITIS C
     Dosage: UNK
     Route: 065
  3. PEGYLATED INTERFERON [Suspect]
     Dosage: DOSAGE FORM: UNSPECIFIED
  4. RIBAVIRINE [Suspect]
     Indication: CHRONIC HEPATITIS C
     Dosage: UNK
     Route: 065
  5. RIBAVIRINE [Suspect]
     Dosage: DOSAGE FORM: UNSPECIFIED

REACTIONS (4)
  - Adverse event [Unknown]
  - Anaemia [Unknown]
  - Rash [Unknown]
  - Drug ineffective [Unknown]
